FAERS Safety Report 7026383-4 (Version None)
Quarter: 2010Q4

REPORT INFORMATION
  Report Type: 
  Country: None (occurrence: None)
  Receive Date: 20101004
  Receipt Date: 20100921
  Transmission Date: 20110411
  Serious: Yes (Other)
  Sender: FDA-Public Use
  Company Number: SE-PFIZER INC-2010119409

PATIENT
  Age: 25 Year
  Sex: Female

DRUGS (23)
  1. LYRICA [Suspect]
     Dosage: UNK
  2. ALENDRONATE SODIUM [Concomitant]
     Dosage: UNK
  3. BACTRIM [Concomitant]
     Dosage: UNK
  4. CONCERTA [Concomitant]
     Dosage: UNK
  5. FLUOXETINE [Concomitant]
     Dosage: UNK
  6. OMEPRAZOLE [Concomitant]
     Dosage: UNK
  7. PREDNISOLONE [Concomitant]
     Dosage: UNK
  8. PROPAVAN [Concomitant]
     Dosage: UNK
  9. RITALIN [Concomitant]
     Dosage: UNK
  10. TAVEGYL [Concomitant]
     Dosage: UNK
  11. TRADOLAN [Concomitant]
     Dosage: UNK
  12. ZYPREXA [Concomitant]
     Dosage: UNK
  13. SEREVENT [Concomitant]
     Dosage: UNK
  14. SERETIDE [Concomitant]
     Dosage: UNK
  15. ACETYLCYSTEINE [Concomitant]
     Dosage: UNK
  16. LERGIGAN [Concomitant]
     Dosage: UNK
  17. NOZINAN [Concomitant]
     Dosage: UNK
  18. OXASCAND [Concomitant]
     Dosage: UNK
  19. ACETAMINOPHEN [Concomitant]
     Dosage: UNK
  20. SONATA [Concomitant]
     Dosage: UNK
  21. ZOLPIDEM TARTRATE [Concomitant]
     Dosage: UNK
  22. THERALEN [Concomitant]
     Dosage: UNK
  23. EPIPEN [Concomitant]
     Dosage: UNK

REACTIONS (1)
  - LUNG DISORDER [None]
